FAERS Safety Report 7318558-1 (Version None)
Quarter: 2011Q1

REPORT INFORMATION
  Report Type: 
  Country: None (occurrence: None)
  Receive Date: 20110217
  Receipt Date: 20110217
  Transmission Date: 20110831
  Serious: No
  Sender: FDA-Public Use
  Company Number: None

PATIENT
  Age: 24 Year
  Sex: Female
  Weight: 63.5036 kg

DRUGS (1)
  1. AVELOX [Suspect]
     Indication: SINUSITIS
     Dosage: 400 MG 1 X DAILY PO
     Route: 048
     Dates: start: 20100410, end: 20100412

REACTIONS (7)
  - JOINT SWELLING [None]
  - TENDON PAIN [None]
  - ABASIA [None]
  - ARTHRALGIA [None]
  - BACK PAIN [None]
  - TENDON DISORDER [None]
  - PAIN [None]
